FAERS Safety Report 5019870-1 (Version None)
Quarter: 2006Q2

REPORT INFORMATION
  Report Type: 
  Country: None (occurrence: None)
  Receive Date: 20060605
  Receipt Date: 20060605
  Transmission Date: 20061013
  Serious: Yes (Other)
  Sender: FDA-Public Use
  Company Number: None

PATIENT
  Age: 34 Year
  Sex: Male
  Weight: 102.0593 kg

DRUGS (1)
  1. PAXIL CR [Suspect]
     Indication: SOCIAL PHOBIA
     Dosage: 1 DAILEY PO
     Route: 048

REACTIONS (7)
  - AGGRESSION [None]
  - ALCOHOLISM [None]
  - ANGER [None]
  - DRUG TOLERANCE INCREASED [None]
  - HOSTILITY [None]
  - LEGAL PROBLEM [None]
  - SPOUSAL ABUSE [None]
